FAERS Safety Report 6398362-1 (Version None)
Quarter: 2009Q4

REPORT INFORMATION
  Report Type: 
  Country: None (occurrence: None)
  Receive Date: 20091013
  Receipt Date: 20090930
  Transmission Date: 20100525
  Serious: Yes (Other)
  Sender: FDA-Public Use
  Company Number: GB-PFIZER INC-2009275970

PATIENT
  Age: 22 Year

DRUGS (1)
  1. CHAMPIX [Suspect]
     Indication: SMOKING CESSATION THERAPY
     Dosage: 1 DF, 2X/DAY
     Route: 048
     Dates: start: 20090828, end: 20090906

REACTIONS (3)
  - DYSGEUSIA [None]
  - GASTROINTESTINAL DISORDER [None]
  - MOOD SWINGS [None]
